FAERS Safety Report 18206621 (Version 1)
Quarter: 2020Q3

REPORT INFORMATION
  Report Type: Spontaneous
  Country: US (occurrence: US)
  Receive Date: 20200827
  Receipt Date: 20200827
  Transmission Date: 20201103
  Serious: Yes (Death)
  Sender: FDA-Public Use
  Company Number: None

PATIENT
  Sex: Female

DRUGS (1)
  1. DEXAMETHASONE. [Suspect]
     Active Substance: DEXAMETHASONE
     Indication: BREAST CANCER FEMALE
     Dosage: ?          OTHER FREQUENCY:ONCE EVERY 21 DAYS;?
     Route: 042
     Dates: start: 20200810, end: 20200827

REACTIONS (1)
  - Death [None]
